FAERS Safety Report 17852931 (Version 1)
Quarter: 2020Q2

REPORT INFORMATION
  Report Type: Spontaneous
  Country: KR (occurrence: KR)
  Receive Date: 20200603
  Receipt Date: 20200603
  Transmission Date: 20200714
  Serious: Yes (Other)
  Sender: FDA-Public Use
  Company Number: KR-SUN PHARMACEUTICAL INDUSTRIES LTD-2020RR-249125

PATIENT
  Age: 75 Year
  Sex: Female

DRUGS (7)
  1. QUETIAPINE. [Suspect]
     Active Substance: QUETIAPINE
     Indication: ILLUSION
  2. DONEPEZIL. [Suspect]
     Active Substance: DONEPEZIL
     Indication: CEREBRAL AMYLOID ANGIOPATHY
     Dosage: 5 MILLIGRAM, UNK
     Route: 065
  3. QUETIAPINE. [Suspect]
     Active Substance: QUETIAPINE
     Indication: SLEEP DISORDER
     Dosage: UNK
     Route: 065
  4. ACETAMINOPHEN. [Concomitant]
     Active Substance: ACETAMINOPHEN
     Indication: BACK PAIN
     Dosage: UNK
     Route: 065
  5. GALANTAMINE. [Suspect]
     Active Substance: GALANTAMINE
     Indication: CEREBRAL AMYLOID ANGIOPATHY
     Dosage: UNK
     Route: 065
  6. MEMANTINE. [Suspect]
     Active Substance: MEMANTINE
     Indication: SLEEP DISORDER
     Dosage: UNK
     Route: 065
  7. MEMANTINE. [Suspect]
     Active Substance: MEMANTINE
     Indication: ILLUSION

REACTIONS (3)
  - Condition aggravated [Unknown]
  - Gastrointestinal disorder [Unknown]
  - Nausea [Unknown]
